FAERS Safety Report 13730199 (Version 1)
Quarter: 2017Q3

REPORT INFORMATION
  Report Type: Spontaneous
  Country: US (occurrence: US)
  Receive Date: 20170707
  Receipt Date: 20170707
  Transmission Date: 20171127
  Serious: Yes (Hospitalization)
  Sender: FDA-Public Use
  Company Number: US-JNJFOC-20170523615

PATIENT
  Age: 67 Year
  Sex: Female
  Weight: 60.78 kg

DRUGS (1)
  1. XARELTO [Suspect]
     Active Substance: RIVAROXABAN
     Indication: THROMBOSIS PROPHYLAXIS
     Dosage: RIVAROXABAN 10-20 MG APPROXIMATELY EXACT DOSAGE UNKNOWN
     Route: 048
     Dates: start: 201306, end: 20141009

REACTIONS (3)
  - Gastrointestinal haemorrhage [Unknown]
  - Haematochezia [Unknown]
  - Blood urine present [Unknown]

NARRATIVE: CASE EVENT DATE: 201402
